FAERS Safety Report 8013983-8 (Version None)
Quarter: 2011Q4

REPORT INFORMATION
  Report Type: 
  Country: None (occurrence: None)
  Receive Date: 20111229
  Receipt Date: 20111220
  Transmission Date: 20120403
  Serious: Yes (Hospitalization)
  Sender: FDA-Public Use
  Company Number: AU-ASTRAZENECA-2011SE77139

PATIENT
  Age: 44 Year

DRUGS (1)
  1. IRESSA [Suspect]
     Route: 048

REACTIONS (2)
  - PERICARDIAL EFFUSION [None]
  - ODYNOPHAGIA [None]
